FAERS Safety Report 13739090 (Version 1)
Quarter: 2017Q3

REPORT INFORMATION
  Report Type: Report from Study
  Country: US (occurrence: US)
  Receive Date: 20170710
  Receipt Date: 20170710
  Transmission Date: 20171127
  Serious: No
  Sender: FDA-Public Use
  Company Number: US-SAOL THERAPEUTICS-2017SAO00899

PATIENT
  Age: 52 Year
  Sex: Male

DRUGS (17)
  1. FENTANYL. [Suspect]
     Active Substance: FENTANYL
     Dosage: 671.35 ?G, \DAY
     Route: 037
     Dates: start: 20170209
  2. BUPIVACAINE. [Suspect]
     Active Substance: BUPIVACAINE
     Dosage: 22.473 MG, \DAY
     Route: 037
     Dates: end: 20170209
  3. CLONIDINE. [Suspect]
     Active Substance: CLONIDINE
     Dosage: 449.47 ?G, \DAY
     Route: 037
     Dates: end: 20170209
  4. CLONIDINE. [Suspect]
     Active Substance: CLONIDINE
     Dosage: 626.21 ?G, \DAY
     Route: 037
     Dates: end: 20170209
  5. COMPOUNDED BACLOFEN [Suspect]
     Active Substance: BACLOFEN
     Dosage: 335.68 ?G, \DAY
     Route: 037
     Dates: start: 20170209
  6. FENTANYL. [Suspect]
     Active Substance: FENTANYL
     Dosage: 495.37 ?G, \DAY
     Route: 037
     Dates: start: 20170209
  7. BUPIVACAINE. [Suspect]
     Active Substance: BUPIVACAINE
     Dosage: 24.769 MG, \DAY
     Route: 037
     Dates: start: 20170209
  8. CLONIDINE. [Suspect]
     Active Substance: CLONIDINE
     Dosage: 671.35 ?G /DAY
     Route: 037
     Dates: start: 20170209
  9. BUPIVACAINE. [Suspect]
     Active Substance: BUPIVACAINE
     Dosage: 33.568 MG, \DAY
     Route: 037
     Dates: start: 20170209
  10. COMPOUNDED BACLOFEN [Suspect]
     Active Substance: BACLOFEN
     Dosage: 313.11 ?G, \DAY
     Route: 037
     Dates: end: 20170209
  11. COMPOUNDED BACLOFEN [Suspect]
     Active Substance: BACLOFEN
     Dosage: 247.69 ?G, \DAY
     Route: 037
     Dates: start: 20170209
  12. FENTANYL. [Suspect]
     Active Substance: FENTANYL
     Dosage: 449.47 ?G, \DAY
     Route: 037
     Dates: end: 20170209
  13. FENTANYL. [Suspect]
     Active Substance: FENTANYL
     Dosage: 626.21 ?G, \DAY
     Route: 037
     Dates: end: 20170209
  14. BUPIVACAINE. [Suspect]
     Active Substance: BUPIVACAINE
     Dosage: 31.311 MG, \DAY
     Route: 037
     Dates: end: 20170209
  15. CLONIDINE. [Suspect]
     Active Substance: CLONIDINE
     Dosage: 495.37 ?G, \DAY
     Route: 037
     Dates: start: 20170209
  16. COMPOUNDED BACLOFEN [Suspect]
     Active Substance: BACLOFEN
     Dosage: 224.73 ?G, \DAY
     Route: 037
     Dates: end: 20170209
  17. HYDROMORPHONE [Suspect]
     Active Substance: HYDROMORPHONE
     Route: 037

REACTIONS (2)
  - Catheter site pain [Not Recovered/Not Resolved]
  - Therapeutic response decreased [Not Recovered/Not Resolved]

NARRATIVE: CASE EVENT DATE: 2017
